FAERS Safety Report 19451340 (Version 2)
Quarter: 2021Q3

REPORT INFORMATION
  Report Type: Spontaneous
  Country: JP (occurrence: JP)
  Receive Date: 20210623
  Receipt Date: 20210701
  Transmission Date: 20211014
  Serious: Yes (Hospitalization)
  Sender: FDA-Public Use
  Company Number: JP-MTPC-MTPC2021-0015051

PATIENT
  Age: 62 Year
  Sex: Female

DRUGS (2)
  1. ACETYLSALICYLIC ACID [Suspect]
     Active Substance: ASPIRIN
     Indication: CEREBRAL INFARCTION
     Dosage: 100 MILLIGRAM, QD
     Route: 065
     Dates: start: 201806, end: 2018
  2. EDARAVONE [Suspect]
     Active Substance: EDARAVONE
     Dosage: 30 MILLIGRAM, 12:00
     Route: 065
     Dates: start: 201806

REACTIONS (2)
  - Haemorrhagic infarction [Recovered/Resolved]
  - Subarachnoid haemorrhage [Recovered/Resolved]

NARRATIVE: CASE EVENT DATE: 2018
